FAERS Safety Report 18861288 (Version 1)
Quarter: 2021Q1

REPORT INFORMATION
  Report Type: Report from Study
  Country: US (occurrence: US)
  Receive Date: 20210208
  Receipt Date: 20210208
  Transmission Date: 20210420
  Serious: Yes (Other)
  Sender: FDA-Public Use
  Company Number: NVSC2021US021232

PATIENT
  Age: 75 Year
  Sex: Male
  Weight: 90.26 kg

DRUGS (1)
  1. ENTRESTO [Suspect]
     Active Substance: SACUBITRIL\VALSARTAN
     Indication: PRODUCT USED FOR UNKNOWN INDICATION
     Dosage: UNK UNK, BID
     Route: 048

REACTIONS (7)
  - Brain hypoxia [Unknown]
  - Weight decreased [Unknown]
  - Depressed mood [Unknown]
  - Balance disorder [Unknown]
  - Decreased activity [Unknown]
  - Hypoacusis [Unknown]
  - Fall [Unknown]
